FAERS Safety Report 8153547-9 (Version None)
Quarter: 2012Q1

REPORT INFORMATION
  Report Type: 
  Country: None (occurrence: None)
  Receive Date: 20120103
  Receipt Date: 20111030
  Transmission Date: 20120608
  Serious: No
  Sender: FDA-Public Use
  Company Number: AE-2011-002867

PATIENT
  Age: 54 Year
  Sex: Male
  Weight: 74.8435 kg

DRUGS (7)
  1. TRIAMCINOLONE CREAM (TRIAMCINOLONE) [Concomitant]
  2. SARNA (SARNA) [Concomitant]
  3. HYDROXYZINE [Concomitant]
  4. RIBAVIRIN [Concomitant]
  5. OLUX-E (CLOBETASOL PROPIONATE) [Concomitant]
  6. PEGINTERFERON (PEGINTERFERON ALFA-2A) [Concomitant]
  7. INCIVEK [Suspect]
     Dosage: (2 PILLS),ORAL
     Route: 048
     Dates: start: 20110818

REACTIONS (9)
  - ORAL DISCOMFORT [None]
  - ANXIETY [None]
  - URTICARIA [None]
  - SWELLING FACE [None]
  - EYE DISCHARGE [None]
  - SECRETION DISCHARGE [None]
  - RASH GENERALISED [None]
  - SKIN CHAPPED [None]
  - FATIGUE [None]
